FAERS Safety Report 5953781-X (Version None)
Quarter: 2008Q4

REPORT INFORMATION
  Report Type: 
  Country: None (occurrence: None)
  Receive Date: 20081114
  Receipt Date: 20081104
  Transmission Date: 20090506
  Serious: Yes (Other)
  Sender: FDA-Public Use
  Company Number: GB-PFIZER INC-2007060321

PATIENT
  Age: 31 Year
  Sex: Female

DRUGS (5)
  1. HYDROCORTISONE SODIUM SUCCINATE [Suspect]
     Indication: ASTHMA
  2. AMINOPHYLLINE [Suspect]
     Indication: ASTHMA
  3. IPRATROPIUM BROMIDE [Suspect]
     Indication: ASTHMA
  4. OXYGEN [Suspect]
     Indication: ASTHMA
  5. ALBUTEROL SULFATE [Suspect]
     Indication: ASTHMA

REACTIONS (3)
  - METABOLIC ACIDOSIS [None]
  - PREMATURE LABOUR [None]
  - RESPIRATORY FAILURE [None]
